FAERS Safety Report 18129562 (Version 1)
Quarter: 2020Q3

REPORT INFORMATION
  Report Type: Spontaneous
  Country: US (occurrence: US)
  Receive Date: 20200810
  Receipt Date: 20200810
  Transmission Date: 20201103
  Serious: Yes (Death)
  Sender: FDA-Public Use
  Company Number: None

PATIENT
  Age: 68 Year
  Sex: Male
  Weight: 50.85 kg

DRUGS (11)
  1. HYDROMORPHONE [Concomitant]
     Active Substance: HYDROMORPHONE
  2. SIMVASTATIN 5MG [Concomitant]
  3. MUPIROCIN 2% [Concomitant]
     Active Substance: MUPIROCIN
  4. METOPROLOL TARTRATE 25MG [Concomitant]
     Active Substance: METOPROLOL TARTRATE
  5. CHEST CONGESTION RELIEF 400MG [Concomitant]
  6. CASODEX 50MG [Concomitant]
  7. OMEPRAZOLE 40MG [Concomitant]
     Active Substance: OMEPRAZOLE
  8. TAMSULOSIN 0.4MG [Concomitant]
     Active Substance: TAMSULOSIN
  9. CIPRO [Concomitant]
     Active Substance: CIPROFLOXACIN HYDROCHLORIDE
  10. JANTOVEN 2.5MG [Concomitant]
  11. LUPRON [Suspect]
     Active Substance: LEUPROLIDE ACETATE
     Indication: PROSTATE CANCER
     Dosage: ?          OTHER FREQUENCY:EVERY 12 WEEKS;?
     Route: 030
     Dates: start: 20200304, end: 20200804

REACTIONS (1)
  - Death [None]

NARRATIVE: CASE EVENT DATE: 20200804
